FAERS Safety Report 8001974-2 (Version None)
Quarter: 2011Q4

REPORT INFORMATION
  Report Type: 
  Country: None (occurrence: None)
  Receive Date: 20111222
  Receipt Date: 20111219
  Transmission Date: 20120403
  Serious: Yes (Other)
  Sender: FDA-Public Use
  Company Number: US-ROCHE-794676

PATIENT
  Sex: Female
  Weight: 63.56 kg

DRUGS (4)
  1. ACCUTANE [Suspect]
     Indication: ACNE
     Route: 065
     Dates: start: 19850701, end: 19860101
  2. SULFASALAZINE [Concomitant]
  3. ACCUTANE [Suspect]
     Route: 065
     Dates: start: 19990601, end: 19991001
  4. VALTREX [Concomitant]

REACTIONS (6)
  - COLITIS ULCERATIVE [None]
  - INFLAMMATORY BOWEL DISEASE [None]
  - PROCTITIS ULCERATIVE [None]
  - HIP FRACTURE [None]
  - INFARCTION [None]
  - ANXIETY [None]
